FAERS Safety Report 8905549 (Version 3)
Quarter: 2013Q3

REPORT INFORMATION
  Report Type: Report from Study
  Country: CA (occurrence: CA)
  Receive Date: 20121109
  Receipt Date: 20130805
  Transmission Date: 20140515
  Serious: Yes (Other)
  Sender: FDA-Public Use
  Company Number: PHHY2012CA102908

PATIENT
  Sex: Female
  Weight: 77.98 kg

DRUGS (4)
  1. GILENYA [Suspect]
     Indication: RELAPSING-REMITTING MULTIPLE SCLEROSIS
     Dosage: 0.5 MG, QD
     Dates: start: 20110818
  2. GILENYA [Suspect]
     Dosage: 0.5 MG, QD
  3. INTERFERON [Concomitant]
  4. GLATIRAMER ACETATE [Concomitant]

REACTIONS (5)
  - Optic atrophy [Recovering/Resolving]
  - Bladder dysfunction [Recovering/Resolving]
  - Pollakiuria [Not Recovered/Not Resolved]
  - Micturition urgency [Not Recovered/Not Resolved]
  - Sensory loss [Not Recovered/Not Resolved]
